FAERS Safety Report 8078300-6 (Version None)
Quarter: 2012Q1

REPORT INFORMATION
  Report Type: 
  Country: None (occurrence: None)
  Receive Date: 20120127
  Receipt Date: 20110222
  Transmission Date: 20120608
  Serious: Yes (Other)
  Sender: FDA-Public Use
  Company Number: US-ABBOTT-09P-163-0604754-00

PATIENT
  Sex: Male
  Weight: 106.69 kg

DRUGS (19)
  1. LEXAPRO [Concomitant]
     Indication: DEPRESSION
  2. MORPHINE [Concomitant]
     Indication: PAIN
  3. LEFLUNOMIDE [Concomitant]
     Indication: RHEUMATOID ARTHRITIS
  4. LEXAPRO [Concomitant]
     Indication: STRESS
  5. COMBINATION OF STEROID AND OTHER UNKNOWN INJECTION [Concomitant]
     Indication: COSTOCHONDRITIS
  6. XANAX [Concomitant]
     Indication: STRESS
  7. NEXIUM [Concomitant]
     Indication: HIATUS HERNIA
  8. AMBIEN CR [Concomitant]
     Indication: INSOMNIA
  9. LEXAPRO [Concomitant]
     Indication: ANXIETY
  10. XANAX [Concomitant]
     Indication: DEPRESSION
  11. VERAMAPRIL [Concomitant]
     Indication: HYPERTENSION
  12. MULTI-VITAMIN [Concomitant]
     Indication: PRODUCT USED FOR UNKNOWN INDICATION
  13. XANAX [Concomitant]
     Indication: ANXIETY
  14. VICOPROFEN [Concomitant]
     Indication: PAIN
  15. SEROTONIN [Concomitant]
     Indication: INSOMNIA
  16. CALCIUM [Concomitant]
     Indication: PRODUCT USED FOR UNKNOWN INDICATION
  17. HUMIRA [Suspect]
     Indication: RHEUMATOID ARTHRITIS
     Route: 058
  18. NEXIUM [Concomitant]
     Indication: DYSPEPSIA
  19. MOBIC [Concomitant]
     Indication: ARTHRALGIA

REACTIONS (5)
  - RHEUMATOID ARTHRITIS [None]
  - POOR QUALITY SLEEP [None]
  - EYE PRURITUS [None]
  - LACRIMATION INCREASED [None]
  - GASTROENTERITIS VIRAL [None]
